FAERS Safety Report 19110279 (Version 3)
Quarter: 2021Q2

REPORT INFORMATION
  Report Type: Report from Study
  Country: CA (occurrence: CA)
  Receive Date: 20210408
  Receipt Date: 20210422
  Transmission Date: 20210717
  Serious: Yes (Hospitalization, Other)
  Sender: FDA-Public Use
  Company Number: CA-JNJFOC-20210357168

PATIENT
  Age: 37 Year
  Sex: Female

DRUGS (6)
  1. FUROSEMIDE. [Concomitant]
     Active Substance: FUROSEMIDE
  2. WARFARIN [Concomitant]
     Active Substance: WARFARIN
  3. MACITENTAN [Suspect]
     Active Substance: MACITENTAN
     Indication: PULMONARY HYPERTENSION
     Route: 048
     Dates: start: 20210327
  4. MELATONIN [Concomitant]
     Active Substance: MELATONIN
  5. VOLIBRIS [Concomitant]
     Active Substance: AMBRISENTAN
  6. ADCIRCA [Concomitant]
     Active Substance: TADALAFIL

REACTIONS (12)
  - Peripheral swelling [Not Recovered/Not Resolved]
  - Arthralgia [Recovering/Resolving]
  - Eye pain [Recovered/Resolved]
  - Musculoskeletal pain [Recovering/Resolving]
  - Dyspnoea [Not Recovered/Not Resolved]
  - Headache [Recovering/Resolving]
  - Eye irritation [Recovered/Resolved]
  - Swelling of eyelid [Not Recovered/Not Resolved]
  - Weight increased [Not Recovered/Not Resolved]
  - Bedridden [Unknown]
  - Pain in extremity [Unknown]
  - Chest pain [Not Recovered/Not Resolved]

NARRATIVE: CASE EVENT DATE: 20210402
